FAERS Safety Report 6075200 (Version 16)
Quarter: 2014Q1

REPORT INFORMATION
  Report Type: Spontaneous
  Country: US (occurrence: US)
  Receive Date: 20060609
  Receipt Date: 20140326
  Transmission Date: 20141002
  Serious: Yes (Other)
  Sender: FDA-Public Use
  Company Number: US-ROCHE-438831

PATIENT
  Age: 24 Year
  Sex: Female
  Weight: 63.5 kg

DRUGS (6)
  1. ACCUTANE [Suspect]
     Indication: ACNE
     Route: 048
     Dates: start: 1983, end: 1983
  2. ACCUTANE [Suspect]
     Route: 048
  3. ACCUTANE [Suspect]
     Dosage: ACCUTANE DECREASED TO 1 DAILY OR ONE ONCE DAILY OR ONE TWICE WEEKLY.
     Route: 048
     Dates: start: 19850114, end: 19850314
  4. ACCUTANE [Suspect]
     Route: 048
     Dates: start: 198701, end: 198706
  5. ASPIRIN [Concomitant]
     Indication: HEADACHE
     Dosage: DRUG REPORTED AS ASPIRIN/TYLENOL.
     Route: 065
  6. TYLENOL [Concomitant]
     Dosage: DRUG REPORTED AS ASPIRIN/TYLENOL.
     Route: 065

REACTIONS (35)
  - Crohn^s disease [Unknown]
  - Inflammatory bowel disease [Unknown]
  - Colon adenoma [Unknown]
  - Colon adenoma [Unknown]
  - Ventricular extrasystoles [Unknown]
  - Mitral valve prolapse [Unknown]
  - Mitral valve incompetence [Unknown]
  - Tricuspid valve incompetence [Unknown]
  - Rectal haemorrhage [Unknown]
  - Colitis ulcerative [Unknown]
  - Demyelination [Unknown]
  - Multiple sclerosis [Unknown]
  - Bronchospasm [Unknown]
  - Arteriosclerosis [Unknown]
  - Non-Hodgkin^s lymphoma [Unknown]
  - Systemic lupus erythematosus [Unknown]
  - Pancreatitis [Unknown]
  - Transient ischaemic attack [Unknown]
  - Clostridium difficile colitis [Recovered/Resolved]
  - Salivary gland mass [Unknown]
  - Nasal septum deviation [Unknown]
  - Endometriosis [Unknown]
  - Heart injury [Unknown]
  - Pruritus [Unknown]
  - Syncope [Recovering/Resolving]
  - Chest pain [Unknown]
  - Essential hypertension [Unknown]
  - Irritable bowel syndrome [Unknown]
  - Oropharyngeal pain [Unknown]
  - Asthenia [Unknown]
  - Fatigue [Unknown]
  - Osteoarthritis [Unknown]
  - Anxiety [Unknown]
  - Panic disorder [Unknown]
  - Osteopenia [Unknown]
